FAERS Safety Report 14187806 (Version 1)
Quarter: 2017Q4

REPORT INFORMATION
  Report Type: Spontaneous
  Country: US (occurrence: US)
  Receive Date: 20171114
  Receipt Date: 20171114
  Transmission Date: 20180321
  Serious: No
  Sender: FDA-Public Use
  Company Number: US-PFIZER INC-2017488138

PATIENT
  Age: 58 Year
  Sex: Female
  Weight: 68.4 kg

DRUGS (2)
  1. ESTRING [Suspect]
     Active Substance: ESTRADIOL
     Indication: OESTROGEN DEFICIENCY
     Dosage: 2 MG, EVERY 3 MONTHS (INSERT VAGINALLY FOR 90 DAYS)
     Route: 067
     Dates: start: 201711
  2. ESTRING [Suspect]
     Active Substance: ESTRADIOL
     Indication: POSTMENOPAUSE
     Dosage: 2 MG, EVERY 3 MONTHS (INSERT VAGINALLY FOR 90 DAYS)
     Route: 067

REACTIONS (5)
  - Vulvovaginal discomfort [Recovering/Resolving]
  - Vulvovaginal pain [Recovering/Resolving]
  - Wrong technique in product usage process [Unknown]
  - Product physical issue [Unknown]
  - Product quality issue [Unknown]

NARRATIVE: CASE EVENT DATE: 2017
